FAERS Safety Report 4849686-8 (Version None)
Quarter: 2005Q4

REPORT INFORMATION
  Report Type: 
  Country: None (occurrence: None)
  Receive Date: 20051115
  Receipt Date: 20050729
  Transmission Date: 20060501
  Serious: No
  Sender: FDA-Public Use
  Company Number: 408098

PATIENT
  Age: 41 Year
  Sex: Female
  Weight: 102.1 kg

DRUGS (3)
  1. PEGASYS [Suspect]
     Indication: HEPATITIS C
     Dosage: 180 MCG 1 PER WEEK SUBCUTANEOUS
     Route: 058
     Dates: start: 20050823, end: 20050717
  2. COPEGUS [Suspect]
     Indication: HEPATITIS C
     Dosage: 600 MG 2 PER DAY ORAL
     Route: 048
     Dates: start: 20040823, end: 20050717
  3. EFFEXOR [Concomitant]

REACTIONS (14)
  - ANXIETY [None]
  - CHEST DISCOMFORT [None]
  - CHILLS [None]
  - COUGH [None]
  - DACRYOCANALICULITIS INFECTIVE [None]
  - DIZZINESS [None]
  - FATIGUE [None]
  - HAEMOGLOBIN DECREASED [None]
  - NAUSEA [None]
  - PAIN [None]
  - PYREXIA [None]
  - RED BLOOD CELL COUNT DECREASED [None]
  - VOMITING [None]
  - WHITE BLOOD CELL COUNT DECREASED [None]
